FAERS Safety Report 14465524 (Version 2)
Quarter: 2018Q2

REPORT INFORMATION
  Report Type: Report from Study
  Country: None (occurrence: US)
  Receive Date: 20180131
  Receipt Date: 20180403
  Transmission Date: 20180711
  Serious: Yes (Hospitalization, Other)
  Sender: FDA-Public Use
  Company Number: US-ABBVIE-16K-163-1791828-00

PATIENT
  Sex: Female
  Weight: 61.29 kg

DRUGS (3)
  1. HUMIRA [Suspect]
     Active Substance: ADALIMUMAB
     Indication: BEHCET^S SYNDROME
     Route: 058
     Dates: start: 2015
  2. HUMIRA [Suspect]
     Active Substance: ADALIMUMAB
     Indication: RHEUMATOID ARTHRITIS
     Route: 058
  3. HUMIRA [Suspect]
     Active Substance: ADALIMUMAB
     Route: 058

REACTIONS (16)
  - Herpes zoster [Recovered/Resolved]
  - Sensitivity to weather change [Unknown]
  - Neuralgia [Not Recovered/Not Resolved]
  - Myocardial infarction [Unknown]
  - Asthenia [Unknown]
  - Surgical failure [Unknown]
  - Nausea [Unknown]
  - Behcet^s syndrome [Unknown]
  - Gait disturbance [Unknown]
  - Back pain [Not Recovered/Not Resolved]
  - Stress fracture [Not Recovered/Not Resolved]
  - Foot fracture [Unknown]
  - Scar [Not Recovered/Not Resolved]
  - Abdominal pain upper [Unknown]
  - Foot deformity [Unknown]
  - Joint injury [Unknown]

NARRATIVE: CASE EVENT DATE: 2016
